FAERS Safety Report 18223724 (Version 4)
Quarter: 2020Q4

REPORT INFORMATION
  Report Type: Spontaneous
  Country: US (occurrence: US)
  Receive Date: 20200902
  Receipt Date: 20201028
  Transmission Date: 20210113
  Serious: Yes (Other)
  Sender: FDA-Public Use
  Company Number: US-GILEAD-2020-0492421

PATIENT
  Age: 67 Year
  Sex: Male
  Weight: 121.3 kg

DRUGS (28)
  1. MEROPENEM. [Concomitant]
     Active Substance: MEROPENEM
  2. SODIUM BICARBONATE. [Concomitant]
     Active Substance: SODIUM BICARBONATE
  3. ATORVASTATIN [Concomitant]
     Active Substance: ATORVASTATIN
  4. MIRALAX [Concomitant]
     Active Substance: POLYETHYLENE GLYCOL 3350
  5. VANCOMYCIN [Concomitant]
     Active Substance: VANCOMYCIN
  6. NITROGLYCERIN. [Concomitant]
     Active Substance: NITROGLYCERIN
  7. ASA [Concomitant]
     Active Substance: ASPIRIN
  8. ZOFRAN [Concomitant]
     Active Substance: ONDANSETRON HYDROCHLORIDE
  9. REMDESIVIR. [Suspect]
     Active Substance: REMDESIVIR
     Indication: COVID-19
     Dosage: 200 MG, QD
     Route: 065
     Dates: start: 20200820, end: 20200820
  10. DUONEB [Concomitant]
     Active Substance: ALBUTEROL SULFATE\IPRATROPIUM BROMIDE
  11. PROTONIX [OMEPRAZOLE] [Concomitant]
     Active Substance: OMEPRAZOLE
  12. METHYLPREDNISOLONE. [Concomitant]
     Active Substance: METHYLPREDNISOLONE
  13. HUMALOG [Concomitant]
     Active Substance: INSULIN LISPRO
  14. DILTIAZEM. [Concomitant]
     Active Substance: DILTIAZEM
  15. ETOMIDATE. [Concomitant]
     Active Substance: ETOMIDATE
  16. SUCCINYLCHOLINE [SUXAMETHONIUM CHLORIDE] [Concomitant]
     Active Substance: SUCCINYLCHOLINE
  17. REMDESIVIR. [Suspect]
     Active Substance: REMDESIVIR
     Dosage: 100 MG, QD
     Route: 065
     Dates: start: 20200821, end: 20200822
  18. FUROSEMIDE. [Concomitant]
     Active Substance: FUROSEMIDE
  19. ACETAMINOPHEN. [Concomitant]
     Active Substance: ACETAMINOPHEN
  20. PROPOFOL. [Concomitant]
     Active Substance: PROPOFOL
  21. DEXAMETHASONE. [Concomitant]
     Active Substance: DEXAMETHASONE
  22. HYDRALAZINE [Concomitant]
     Active Substance: HYDRALAZINE HYDROCHLORIDE
  23. TAMSULOSIN [Concomitant]
     Active Substance: TAMSULOSIN
  24. IOPAMIDOL ICU-VITA [Concomitant]
  25. FENTANYL. [Concomitant]
     Active Substance: FENTANYL
  26. NORMAL SALINE [Concomitant]
     Active Substance: SODIUM CHLORIDE
  27. COREG [Concomitant]
     Active Substance: CARVEDILOL
  28. HEPARIN [Concomitant]
     Active Substance: HEPARIN SODIUM

REACTIONS (1)
  - Glomerular filtration rate decreased [Recovered/Resolved]

NARRATIVE: CASE EVENT DATE: 20200822
